FAERS Safety Report 5749707-4 (Version None)
Quarter: 2008Q2

REPORT INFORMATION
  Report Type: 
  Country: None (occurrence: None)
  Receive Date: 20080527
  Receipt Date: 20080514
  Transmission Date: 20081010
  Serious: Yes (Life-Threatening, Hospitalization, Disabling)
  Sender: FDA-Public Use
  Company Number: US-GENENTECH-259913

PATIENT
  Sex: Female
  Weight: 82.9 kg

DRUGS (1)
  1. OMALIZUMAB [Suspect]
     Indication: ASTHMA
     Dosage: UNK, UNK
     Route: 058
     Dates: start: 20050502

REACTIONS (2)
  - BRONCHITIS [None]
  - STATUS ASTHMATICUS [None]
